FAERS Safety Report 20435961 (Version 1)
Quarter: 2022Q1

REPORT INFORMATION
  Report Type: Spontaneous
  Country: US (occurrence: US)
  Receive Date: 20220207
  Receipt Date: 20220207
  Transmission Date: 20220423
  Serious: No
  Sender: FDA-Public Use
  Company Number: US-TEVA-2022-US-2001249

PATIENT
  Age: 52 Year
  Sex: Female

DRUGS (1)
  1. AJOVY [Suspect]
     Active Substance: FREMANEZUMAB-VFRM
     Indication: Migraine
     Dosage: INJECTION (AUTOINJECTOR), 225 MG / 1.5 ML
     Route: 065
     Dates: start: 2019

REACTIONS (13)
  - Pain [Unknown]
  - Injection site extravasation [Unknown]
  - Injection site pain [Unknown]
  - Headache [Unknown]
  - Dyspnoea [Unknown]
  - Gait disturbance [Unknown]
  - Pain in extremity [Unknown]
  - Anxiety [Unknown]
  - Product administered at inappropriate site [Unknown]
  - Product quality issue [Unknown]
  - Device difficult to use [Unknown]
  - Device malfunction [Unknown]
  - Incorrect dose administered by device [Unknown]

NARRATIVE: CASE EVENT DATE: 20220117
